FAERS Safety Report 7827154-9 (Version None)
Quarter: 2011Q4

REPORT INFORMATION
  Report Type: 
  Country: None (occurrence: None)
  Receive Date: 20111019
  Receipt Date: 20111019
  Transmission Date: 20120403
  Serious: Yes (Hospitalization)
  Sender: FDA-Public Use
  Company Number: None

PATIENT
  Age: 60 Year
  Sex: Female
  Weight: 68.0396 kg

DRUGS (1)
  1. PLAVIX [Suspect]

REACTIONS (3)
  - DYSPNOEA [None]
  - IRON DEFICIENCY ANAEMIA [None]
  - HAEMATOCHEZIA [None]
